FAERS Safety Report 4336467-7 (Version None)
Quarter: 2004Q2

REPORT INFORMATION
  Report Type: 
  Country: None (occurrence: None)
  Receive Date: 20040407
  Receipt Date: 20040325
  Transmission Date: 20050107
  Serious: Yes (Other)
  Sender: FDA-Public Use
  Company Number: DSA_23737_2003

PATIENT
  Age: 76 Year
  Sex: Female
  Weight: 62.5964 kg

DRUGS (6)
  1. CARDIZEM [Suspect]
     Indication: ANGINA PECTORIS
     Dosage: 15 MG TID PO
     Route: 048
     Dates: start: 19930901
  2. DILTIAZEM [Suspect]
     Indication: ANGINA PECTORIS
     Dosage: 15 MG TID PO
     Route: 048
  3. DILTIAZEM [Suspect]
     Indication: ANGINA PECTORIS
     Dosage: 15 MG BID PO
     Route: 048
  4. ASPIRIN [Concomitant]
  5. AZELASTINE [Concomitant]
  6. DIPHENHYDRAMINE HCL [Concomitant]

REACTIONS (4)
  - ASTHMA [None]
  - CONVULSION [None]
  - DIZZINESS [None]
  - PHARMACEUTICAL PRODUCT COMPLAINT [None]
